FAERS Safety Report 14615570 (Version 2)
Quarter: 2018Q1

REPORT INFORMATION
  Report Type: Spontaneous
  Country: JP (occurrence: JP)
  Receive Date: 20180309
  Receipt Date: 20180310
  Transmission Date: 20180509
  Serious: Yes (Hospitalization, Other)
  Sender: FDA-Public Use
  Company Number: JP-ROCHE-2086599

PATIENT
  Age: 45 Year
  Sex: Male

DRUGS (8)
  1. IMMUNOGLOBULIN NOS [Concomitant]
     Active Substance: IMMUNE GLOBULIN NOS
  2. TACROLIMUS HYDRATE [Concomitant]
     Active Substance: TACROLIMUS
     Dosage: DOSAGE IS UNCERTAIN.
     Route: 048
  3. METHYLPREDNISOLONE. [Concomitant]
     Active Substance: METHYLPREDNISOLONE
     Dosage: DOSAGE IS UNCERTAIN.
     Route: 048
  4. CLINDAMYCIN. [Concomitant]
     Active Substance: CLINDAMYCIN
  5. CELLCEPT [Suspect]
     Active Substance: MYCOPHENOLATE MOFETIL\MYCOPHENOLATE MOFETIL HYDROCHLORIDE
     Indication: PROPHYLAXIS AGAINST TRANSPLANT REJECTION
     Route: 048
  6. ANTITHROMBIN III [Concomitant]
     Active Substance: ANTITHROMBIN III HUMAN
  7. VANCOMYCIN [Concomitant]
     Active Substance: VANCOMYCIN
  8. MEROPENEM. [Concomitant]
     Active Substance: MEROPENEM

REACTIONS (3)
  - Sepsis [Unknown]
  - Necrotising fasciitis [Unknown]
  - Acute kidney injury [Unknown]
